FAERS Safety Report 19509404 (Version 2)
Quarter: 2021Q4

REPORT INFORMATION
  Report Type: Spontaneous
  Country: JP (occurrence: JP)
  Receive Date: 20210708
  Receipt Date: 20211008
  Transmission Date: 20220303
  Serious: Yes (Death)
  Sender: FDA-Public Use
  Company Number: JP-JNJFOC-20210708102

PATIENT
  Age: 39 Year
  Sex: Female
  Weight: 33 kg

DRUGS (1)
  1. OPSUMIT [Suspect]
     Active Substance: MACITENTAN
     Indication: Pulmonary arterial hypertension
     Route: 048
     Dates: start: 20190402

REACTIONS (2)
  - Fallot^s tetralogy [Fatal]
  - Pulmonary arterial hypertension [Fatal]
